FAERS Safety Report 7323619-7 (Version None)
Quarter: 2011Q1

REPORT INFORMATION
  Report Type: 
  Country: None (occurrence: None)
  Receive Date: 20110217
  Receipt Date: 20110204
  Transmission Date: 20110831
  Serious: Yes (Other)
  Sender: FDA-Public Use
  Company Number: NSR_00202_2011

PATIENT
  Age: 54 Year
  Sex: Male

DRUGS (4)
  1. METHYLDOPA [Concomitant]
  2. INDOMETACIN [Concomitant]
  3. ALLOPURINOL [Suspect]
     Indication: HYPERURICAEMIA
     Dosage: (100 MG QD)
  4. AMOXICILLIN [Suspect]
     Indication: PRODUCT USED FOR UNKNOWN INDICATION
     Dosage: (DF)

REACTIONS (5)
  - DRUG RASH WITH EOSINOPHILIA AND SYSTEMIC SYMPTOMS [None]
  - FACE OEDEMA [None]
  - DRUG HYPERSENSITIVITY [None]
  - CONJUNCTIVITIS [None]
  - MOUTH ULCERATION [None]
